FAERS Safety Report 12558610 (Version 1)
Quarter: 2016Q3

REPORT INFORMATION
  Report Type: Other
  Country: KR (occurrence: KR)
  Receive Date: 20160715
  Receipt Date: 20160715
  Transmission Date: 20161109
  Serious: Yes (Life-Threatening, Other)
  Sender: FDA-Public Use
  Company Number: KR-LUPIN PHARMACEUTICALS INC.-2015-03147

PATIENT
  Age: 53 Year
  Sex: Male

DRUGS (1)
  1. LAMOTRIGINE. [Suspect]
     Active Substance: LAMOTRIGINE
     Indication: EPILEPSY
     Route: 065

REACTIONS (1)
  - Stevens-Johnson syndrome [Recovered/Resolved]
